FAERS Safety Report 5707495-1 (Version None)
Quarter: 2008Q2

REPORT INFORMATION
  Report Type: 
  Country: None (occurrence: None)
  Receive Date: 20080416
  Receipt Date: 20080407
  Transmission Date: 20081010
  Serious: Yes (Death)
  Sender: FDA-Public Use
  Company Number: CA-PFIZER INC-2008031316

PATIENT
  Age: 61 Year
  Sex: Female

DRUGS (1)
  1. REVATIO [Suspect]
     Route: 048

REACTIONS (1)
  - DEATH [None]
